FAERS Safety Report 4912872-2 (Version None)
Quarter: 2006Q1

REPORT INFORMATION
  Report Type: 
  Country: None (occurrence: None)
  Receive Date: 20060210
  Receipt Date: 20060206
  Transmission Date: 20060701
  Serious: Yes (Life-Threatening)
  Sender: FDA-Public Use
  Company Number: B0394932A

PATIENT
  Age: 76 Year
  Sex: Female

DRUGS (7)
  1. REQUIP [Suspect]
     Indication: PARKINSON'S DISEASE
     Dosage: 250 MCG / THREE TIMES PER DAY / ORAL
     Route: 048
     Dates: start: 20050814, end: 20050816
  2. SELEGILINE HCL [Concomitant]
  3. SINEMET [Concomitant]
  4. ASPIRIN [Concomitant]
  5. DILTIAZEM HYDROCHLORIDE [Concomitant]
  6. METFORMIN HYDROCHLORIDE [Concomitant]
  7. SINEMET [Concomitant]

REACTIONS (3)
  - CARDIAC ARREST [None]
  - SYNCOPE [None]
  - VENTRICULAR FIBRILLATION [None]
